FAERS Safety Report 24570748 (Version 1)
Quarter: 2024Q4

REPORT INFORMATION
  Report Type: Spontaneous
  Country: JP (occurrence: JP)
  Receive Date: 20241101
  Receipt Date: 20241101
  Transmission Date: 20250114
  Serious: Yes (Death)
  Sender: NOVARTIS
  Company Number: JP-002147023-NVSJ2024JP012899

PATIENT
  Age: 77 Year
  Sex: Male

DRUGS (1)
  1. IMATINIB MESYLATE [Suspect]
     Active Substance: IMATINIB MESYLATE
     Indication: Malignant melanoma of sites other than skin
     Dosage: UNK
     Route: 048

REACTIONS (3)
  - Malignant melanoma of sites other than skin [Fatal]
  - Malignant neoplasm progression [Fatal]
  - Off label use [Unknown]
